FAERS Safety Report 8346722-1 (Version None)
Quarter: 2012Q2

REPORT INFORMATION
  Report Type: 
  Country: None (occurrence: None)
  Receive Date: 20120507
  Receipt Date: 20120507
  Transmission Date: 20120825
  Serious: No
  Sender: FDA-Public Use
  Company Number: None

PATIENT
  Sex: Male

DRUGS (2)
  1. RIBAVIRIN [Suspect]
  2. PEGASYS [Suspect]
     Dosage: 180 MCG/0.5ML PO
     Route: 048

REACTIONS (1)
  - POLLAKIURIA [None]
